FAERS Safety Report 6623822-5 (Version None)
Quarter: 2010Q1

REPORT INFORMATION
  Report Type: 
  Country: None (occurrence: None)
  Receive Date: 20100310
  Receipt Date: 20100225
  Transmission Date: 20100710
  Serious: Yes (Hospitalization)
  Sender: FDA-Public Use
  Company Number: PHHY2010BR10995

PATIENT
  Age: 75 Year
  Sex: Male
  Weight: 86 kg

DRUGS (4)
  1. FORASEQ [Suspect]
     Indication: CHRONIC OBSTRUCTIVE PULMONARY DISEASE
     Dosage: 1 DF, BID
  2. FORASEQ [Suspect]
     Dosage: 1 DF, DAILY
  3. ENALAPRIL MALEATE [Concomitant]
     Indication: HYPERTENSION
     Dosage: 1 TABLET, BID
     Route: 048
  4. ACETYLSALICYLIC ACID [Concomitant]
     Indication: ANTICOAGULANT THERAPY
     Dosage: 1 TABLET AFTER THE LUNCH
     Route: 048

REACTIONS (5)
  - BURNING SENSATION [None]
  - CAROTID ARTERIOSCLEROSIS [None]
  - DRUG ADMINISTRATION ERROR [None]
  - SKIN IRRITATION [None]
  - SURGERY [None]
